FAERS Safety Report 10286594 (Version 3)
Quarter: 2014Q3

REPORT INFORMATION
  Report Type: Report from Study
  Country: US (occurrence: US)
  Receive Date: 20140709
  Receipt Date: 20140801
  Transmission Date: 20150326
  Serious: Yes (Death, Hospitalization)
  Sender: FDA-Public Use
  Company Number: PHHO2014US009496

PATIENT
  Age: 66 Year
  Sex: Female
  Weight: 54.42 kg

DRUGS (6)
  1. ASPIRIN. [Concomitant]
     Active Substance: ASPIRIN
     Indication: PROPHYLAXIS
     Dosage: 81 MG, UNK
  2. DOCUSATE SODIUM. [Concomitant]
     Active Substance: DOCUSATE SODIUM
     Indication: CONSTIPATION
     Dosage: 100 MG, PRN
     Dates: start: 201309
  3. LISINOPRIL. [Concomitant]
     Active Substance: LISINOPRIL
     Indication: HYPERTENSION
     Dosage: 10 MG BID
  4. MULTI VITAMIN [Concomitant]
     Active Substance: VITAMINS
     Indication: NUTRITIONAL SUPPLEMENTATION
     Dosage: UNK
     Dates: start: 20130924
  5. SOM230 [Suspect]
     Active Substance: PASIREOTIDE
     Dosage: 60 UNK, QMO
     Route: 058
     Dates: start: 20140520, end: 20140617
  6. SOM230 [Suspect]
     Active Substance: PASIREOTIDE
     Indication: HEPATOCELLULAR CARCINOMA
     Dosage: 60 MG, QMO
     Route: 058
     Dates: start: 20140327

REACTIONS (1)
  - Hepatic encephalopathy [Fatal]

NARRATIVE: CASE EVENT DATE: 20140627
